FAERS Safety Report 4320964-4 (Version None)
Quarter: 2004Q1

REPORT INFORMATION
  Report Type: 
  Country: None (occurrence: None)
  Receive Date: 20040322
  Receipt Date: 20040322
  Transmission Date: 20041129
  Serious: Yes (Life-Threatening, Hospitalization, Disabling)
  Sender: FDA-Public Use
  Company Number: None

PATIENT
  Age: 42 Year
  Sex: Female
  Weight: 102.0593 kg

DRUGS (4)
  1. PROVERA [Suspect]
     Indication: MENOPAUSE
     Dosage: 1 TABLET DAILY ORAL
     Route: 048
     Dates: start: 20031205, end: 20040102
  2. PROVERA [Suspect]
     Indication: MENSTRUATION IRREGULAR
     Dosage: 1 TABLET DAILY ORAL
     Route: 048
     Dates: start: 20031205, end: 20040102
  3. ESTRATEST [Suspect]
     Indication: MENOPAUSE
     Dosage: 1 TABLET DAILY ORAL
     Route: 048
     Dates: start: 20031205, end: 20040102
  4. ESTRATEST [Suspect]
     Indication: MENSTRUATION IRREGULAR
     Dosage: 1 TABLET DAILY ORAL
     Route: 048
     Dates: start: 20031205, end: 20040102

REACTIONS (2)
  - PULMONARY EMBOLISM [None]
  - PULMONARY FUNCTION TEST DECREASED [None]
